FAERS Safety Report 7023939-X (Version None)
Quarter: 2010Q4

REPORT INFORMATION
  Report Type: 
  Country: None (occurrence: None)
  Receive Date: 20101001
  Receipt Date: 20100922
  Transmission Date: 20110411
  Serious: Yes (Other)
  Sender: FDA-Public Use
  Company Number: US-SANOFI-AVENTIS-2010SA058013

PATIENT
  Age: 28 Year
  Sex: Female
  Weight: 53.97 kg

DRUGS (1)
  1. LOVENOX [Suspect]
     Indication: FACTOR V LEIDEN MUTATION
     Route: 065

REACTIONS (1)
  - WEIGHT DECREASED [None]
